FAERS Safety Report 7749287-8 (Version None)
Quarter: 2011Q3

REPORT INFORMATION
  Report Type: 
  Country: None (occurrence: None)
  Receive Date: 20110908
  Receipt Date: 20110829
  Transmission Date: 20111222
  Serious: Yes (Other)
  Sender: FDA-Public Use
  Company Number: 2011SP037532

PATIENT
  Age: 46 Year
  Sex: Male

DRUGS (7)
  1. NEXIUM [Suspect]
     Indication: PRODUCT USED FOR UNKNOWN INDICATION
  2. VANDETANIB [Suspect]
     Indication: THYROID CANCER
     Dosage: 300 MG; PO;  200 MG; PO
     Route: 048
     Dates: start: 20110411, end: 20110701
  3. VANDETANIB [Suspect]
     Indication: THYROID CANCER
     Dosage: 300 MG; PO;  200 MG; PO
     Route: 048
     Dates: start: 20110701, end: 20110720
  4. DESLORATADINE [Suspect]
     Indication: PRODUCT USED FOR UNKNOWN INDICATION
  5. CACIT D3 (LEKOVIT CA) [Suspect]
     Indication: PRODUCT USED FOR UNKNOWN INDICATION
  6. PREVISCAN (FLUINDIONE) [Suspect]
     Indication: PRODUCT USED FOR UNKNOWN INDICATION
  7. LEVOTHYROXINE SODIUM [Suspect]
     Indication: PRODUCT USED FOR UNKNOWN INDICATION

REACTIONS (3)
  - HYPERTENSION [None]
  - ELECTROCARDIOGRAM QT PROLONGED [None]
  - BLOOD THYROID STIMULATING HORMONE INCREASED [None]
